FAERS Safety Report 22195561 (Version 1)
Quarter: 2023Q2

REPORT INFORMATION
  Report Type: Report from Study
  Country: KR (occurrence: KR)
  Receive Date: 20230411
  Receipt Date: 20230411
  Transmission Date: 20230721
  Serious: Yes (Hospitalization)
  Sender: FDA-Public Use
  Company Number: KR-002147023-NVSC2023KR081479

PATIENT
  Sex: Female

DRUGS (4)
  1. COSENTYX [Suspect]
     Active Substance: SECUKINUMAB
     Indication: Ankylosing spondylitis
     Dosage: 300 MG
     Route: 058
     Dates: start: 20220829, end: 20220829
  2. COSENTYX [Suspect]
     Active Substance: SECUKINUMAB
     Dosage: 300 MG
     Route: 058
     Dates: start: 20220929, end: 20220929
  3. COSENTYX [Suspect]
     Active Substance: SECUKINUMAB
     Dosage: 600 MG
     Route: 058
     Dates: start: 20221126, end: 20221126
  4. COSENTYX [Suspect]
     Active Substance: SECUKINUMAB
     Dosage: 600 MG
     Route: 058
     Dates: start: 20230404

REACTIONS (2)
  - Rheumatoid arthritis [Recovering/Resolving]
  - Incorrect dose administered [Unknown]
